FAERS Safety Report 4736477-1 (Version None)
Quarter: 2005Q3

REPORT INFORMATION
  Report Type: 
  Country: None (occurrence: None)
  Receive Date: 20050802
  Receipt Date: 20050725
  Transmission Date: 20060218
  Serious: Yes (Other)
  Sender: FDA-Public Use
  Company Number: 106939ISR

PATIENT
  Age: 38 Year
  Sex: Female

DRUGS (5)
  1. GLATIRAMER ACETATE [Suspect]
     Indication: MULTIPLE SCLEROSIS
     Dosage: 20 MILLIGRAM SUBCUTANEOUS
     Route: 058
     Dates: start: 20050101
  2. BACLOFEN [Concomitant]
  3. CARBAMAZEPINE [Concomitant]
  4. DICLOFENAC [Concomitant]
  5. DOTHIEPIN HYDROCHLORIDE [Concomitant]

REACTIONS (2)
  - RETINAL DEPOSITS [None]
  - VISUAL ACUITY REDUCED [None]
